FAERS Safety Report 24046921 (Version 5)
Quarter: 2024Q4

REPORT INFORMATION
  Report Type: Spontaneous
  Country: AU (occurrence: AU)
  Receive Date: 20240703
  Receipt Date: 20241126
  Transmission Date: 20250114
  Serious: No
  Sender: PFIZER
  Company Number: AU-PFIZER INC-202400203496

PATIENT
  Sex: Female

DRUGS (1)
  1. ENBREL [Suspect]
     Active Substance: ETANERCEPT
     Dosage: UNK

REACTIONS (4)
  - Accidental exposure to product [Unknown]
  - Haemorrhage [Unknown]
  - Injury associated with device [Unknown]
  - Wrong technique in device usage process [Unknown]
